FAERS Safety Report 7298051-5 (Version None)
Quarter: 2011Q1

REPORT INFORMATION
  Report Type: 
  Country: None (occurrence: None)
  Receive Date: 20110217
  Receipt Date: 20101117
  Transmission Date: 20110831
  Serious: Yes (Hospitalization, Other)
  Sender: FDA-Public Use
  Company Number: GB-RANBAXY-2009RR-29656

PATIENT
  Sex: Male

DRUGS (3)
  1. ACETAMINOPHEN [Concomitant]
  2. GABAPENTIN [Concomitant]
     Indication: NEURALGIA
  3. CODEINE [Suspect]
     Indication: NEURALGIA
     Dosage: 30 MG, UNK

REACTIONS (3)
  - PHARYNGEAL OEDEMA [None]
  - HYPERSENSITIVITY [None]
  - LOCAL SWELLING [None]
